FAERS Safety Report 9376224 (Version 1)
Quarter: 2013Q3

REPORT INFORMATION
  Report Type: Spontaneous
  Country: US (occurrence: US)
  Receive Date: 20130701
  Receipt Date: 20130701
  Transmission Date: 20140515
  Serious: Yes (Other)
  Sender: FDA-Public Use
  Company Number: US-ROCHE-1239220

PATIENT
  Sex: Female

DRUGS (3)
  1. PERJETA [Suspect]
     Indication: BREAST CANCER
     Route: 042
  2. HERCEPTIN [Suspect]
     Indication: BREAST CANCER
     Route: 065
  3. NAVELBINE [Concomitant]
     Indication: BREAST CANCER
     Route: 065

REACTIONS (3)
  - Diarrhoea [Not Recovered/Not Resolved]
  - Abdominal pain upper [Not Recovered/Not Resolved]
  - Anorectal disorder [Not Recovered/Not Resolved]
